FAERS Safety Report 7951983-4 (Version None)
Quarter: 2011Q4

REPORT INFORMATION
  Report Type: 
  Country: None (occurrence: None)
  Receive Date: 20111201
  Receipt Date: 20111125
  Transmission Date: 20120403
  Serious: Yes (Hospitalization)
  Sender: FDA-Public Use
  Company Number: DE-ABBOTT-11P-062-0724821-00

PATIENT
  Sex: Female

DRUGS (1)
  1. HUMIRA [Suspect]
     Indication: RHEUMATOID ARTHRITIS
     Route: 058
     Dates: start: 20110405, end: 20111101

REACTIONS (4)
  - PAIN [None]
  - GENERAL PHYSICAL HEALTH DETERIORATION [None]
  - RHEUMATOID ARTHRITIS [None]
  - FATIGUE [None]
